FAERS Safety Report 5946547-8 (Version None)
Quarter: 2008Q4

REPORT INFORMATION
  Report Type: 
  Country: None (occurrence: None)
  Receive Date: 20081110
  Receipt Date: 20081031
  Transmission Date: 20090506
  Serious: Yes (Other)
  Sender: FDA-Public Use
  Company Number: B0545447A

PATIENT
  Sex: Male

DRUGS (4)
  1. KIVEXA [Suspect]
     Indication: HIV INFECTION
     Dates: start: 20051103, end: 20051117
  2. NORVIR [Suspect]
     Indication: HIV INFECTION
     Dates: start: 20051103
  3. TELZIR [Suspect]
     Indication: HIV INFECTION
     Dates: start: 20051103
  4. BACTRIM DS [Concomitant]

REACTIONS (1)
  - DRUG RASH WITH EOSINOPHILIA AND SYSTEMIC SYMPTOMS [None]
